FAERS Safety Report 10132690 (Version 1)
Quarter: 2014Q2

REPORT INFORMATION
  Report Type: Spontaneous
  Country: US (occurrence: US)
  Receive Date: 20140428
  Receipt Date: 20140428
  Transmission Date: 20141212
  Serious: No
  Sender: FDA-Public Use
  Company Number: US-MALLINCKRODT-T201401510

PATIENT
  Age: 57 Year
  Sex: Female

DRUGS (1)
  1. HYDROCODONE/ACETAMINOPHEN [Suspect]
     Indication: NEUROPATHY PERIPHERAL
     Dosage: 7.5/325 MG, TWO TO THREE DAILY
     Route: 048
     Dates: start: 201402

REACTIONS (1)
  - Headache [Not Recovered/Not Resolved]
